FAERS Safety Report 8426457-7 (Version None)
Quarter: 2012Q2

REPORT INFORMATION
  Report Type: 
  Country: None (occurrence: None)
  Receive Date: 20120524
  Receipt Date: 20120509
  Transmission Date: 20120825
  Serious: Yes (Hospitalization)
  Sender: FDA-Public Use
  Company Number: 2012032341

PATIENT
  Age: 66 Year
  Sex: Male

DRUGS (17)
  1. PRIVIGEN [Suspect]
     Indication: CHRONIC OBSTRUCTIVE PULMONARY DISEASE
     Dosage: 15 G TOTAL, AT MAX RATE OF 0.06 ML/KG/MIN
     Route: 042
     Dates: start: 20110805
  2. PRIVIGEN [Suspect]
     Indication: IMMUNOGLOBULINS ABNORMAL
     Dosage: 15 G TOTAL, AT MAX RATE OF 0.06 ML/KG/MIN
     Route: 042
     Dates: start: 20110805
  3. PRIVIGEN [Suspect]
     Indication: CHRONIC OBSTRUCTIVE PULMONARY DISEASE
     Dosage: 15 G TOTAL, AT MAX RATE OF 0.06 ML/KG/MIN
     Route: 042
     Dates: start: 20110902, end: 20110902
  4. PRIVIGEN [Suspect]
     Indication: IMMUNOGLOBULINS ABNORMAL
     Dosage: 15 G TOTAL, AT MAX RATE OF 0.06 ML/KG/MIN
     Route: 042
     Dates: start: 20110902, end: 20110902
  5. ALENDRONATE SODIUM [Concomitant]
  6. CALCITE (CALCIUM CARBONATE) [Concomitant]
  7. TAMSULOSIN HCL [Concomitant]
  8. VENLAFAXINE HCL [Concomitant]
  9. VITAPHAKOL [Concomitant]
  10. PREDNISONE TAB [Concomitant]
  11. ATIVAN [Concomitant]
  12. FINASTERIDE [Concomitant]
  13. TRAZODONE HCL [Concomitant]
  14. VITAMIN B1 TAB [Concomitant]
  15. LYRICA [Concomitant]
  16. NEXIUM [Concomitant]
  17. QUININE SULFATE [Concomitant]

REACTIONS (10)
  - DYSPNOEA [None]
  - MUSCULOSKELETAL CHEST PAIN [None]
  - WHEEZING [None]
  - OFF LABEL USE [None]
  - HEART RATE INCREASED [None]
  - DRUG HYPERSENSITIVITY [None]
  - CHILLS [None]
  - HYPOTENSION [None]
  - BLOOD PRESSURE INCREASED [None]
  - RESPIRATORY RATE DECREASED [None]
